FAERS Safety Report 8740452 (Version 3)
Quarter: 2012Q4

REPORT INFORMATION
  Report Type: 
  Country: US (occurrence: US)
  Receive Date: 20120823
  Receipt Date: 20121223
  Transmission Date: 20130627
  Serious: No
  Sender: FDA-Public Use
  Company Number: US-009507513-1208USA006564

PATIENT
  Sex: Female
  Weight: 61.59 kg

DRUGS (1)
  1. NEXPLANON [Suspect]
     Indication: CONTRACEPTION
     Dosage: UNK
     Dates: start: 20120807

REACTIONS (3)
  - Pruritus [Unknown]
  - Implant site irritation [Unknown]
  - Device expulsion [Unknown]
